FAERS Safety Report 11384309 (Version 1)
Quarter: 2015Q3

REPORT INFORMATION
  Report Type: Spontaneous
  Country: US (occurrence: US)
  Receive Date: 20150811
  Receipt Date: 20150811
  Transmission Date: 20151125
  Serious: No
  Sender: FDA-Public Use
  Company Number: US-ELI_LILLY_AND_COMPANY-US201011001009

PATIENT
  Age: 50 Year
  Sex: Male

DRUGS (1)
  1. CIALIS [Suspect]
     Active Substance: TADALAFIL
     Dosage: UNK, UNKNOWN

REACTIONS (7)
  - Off label use [Unknown]
  - Pain in extremity [Unknown]
  - Arthralgia [Unknown]
  - Headache [Recovered/Resolved]
  - Pain [Unknown]
  - Myalgia [Unknown]
  - Poor quality sleep [Unknown]
